FAERS Safety Report 22300374 (Version 1)
Quarter: 2023Q2

REPORT INFORMATION
  Report Type: Spontaneous
  Country: DE (occurrence: DE)
  Receive Date: 20230509
  Receipt Date: 20230509
  Transmission Date: 20230721
  Serious: Yes (Life-Threatening, Hospitalization, Other)
  Sender: FDA-Public Use
  Company Number: None

PATIENT
  Age: 67 Year
  Sex: Female
  Weight: 65 kg

DRUGS (2)
  1. SIMVASTATIN [Suspect]
     Active Substance: SIMVASTATIN
     Indication: Hypercholesterolaemia
     Dosage: 1 DOSAGE FORM, QOD 0-0-1, EVERY 2 DAYS
     Route: 048
  2. LEVOTHYROXINE SODIUM [Concomitant]
     Active Substance: LEVOTHYROXINE SODIUM
     Dosage: L-THYROXINE 100?G 1-0-0 ALTERNATED WITH100+12.5?G
     Route: 065

REACTIONS (15)
  - Pain [Unknown]
  - Urinary tract infection [Unknown]
  - Skin burning sensation [Unknown]
  - Hepatitis cholestatic [Unknown]
  - Cholelithiasis [Unknown]
  - Cutaneous vasculitis [Unknown]
  - Hypokalaemia [Unknown]
  - Sepsis [Unknown]
  - Arrhythmia [Unknown]
  - Chromaturia [Unknown]
  - Anaphylactic shock [Unknown]
  - Pain in extremity [Unknown]
  - Henoch-Schonlein purpura [Unknown]
  - Asthenia [Unknown]
  - Rash [Unknown]

NARRATIVE: CASE EVENT DATE: 20230201
